FAERS Safety Report 5116840-X (Version None)
Quarter: 2006Q3

REPORT INFORMATION
  Report Type: 
  Country: None (occurrence: None)
  Receive Date: 20060925
  Receipt Date: 20060912
  Transmission Date: 20061208
  Serious: Yes (Other)
  Sender: FDA-Public Use
  Company Number: 2006102826

PATIENT
  Age: 58 Year
  Sex: Male
  Weight: 73.9363 kg

DRUGS (19)
  1. ZITHROMAX [Suspect]
     Indication: LYME DISEASE
     Dosage: 500 MG (250 MG, 2 IN 1 D)
     Dates: start: 20050401
  2. REYATAZ [Concomitant]
  3. NORVIR [Concomitant]
  4. VIREAD [Concomitant]
  5. EPIVIR [Concomitant]
  6. ANDROGEL [Concomitant]
  7. ACYCLOVIR [Concomitant]
  8. LEVOTHYROXINE SODIUM [Concomitant]
  9. FLONASE [Concomitant]
  10. LIPITOR [Concomitant]
  11. NIACIN [Concomitant]
  12. ACTOS [Concomitant]
  13. PRANDIN [Concomitant]
  14. NOROXIN [Concomitant]
  15. OMEPRAZOLE [Concomitant]
  16. ECONAZOLE NITRATE [Concomitant]
  17. LISINOPRIL [Concomitant]
  18. HYDROXYCHLOROQUINE SULFATE [Concomitant]
  19. LONOX (ATROPINE SULFATE, DIPHENOXYLATE HYDROCHLORIDE) [Concomitant]

REACTIONS (5)
  - BLOOD GLUCOSE INCREASED [None]
  - DISEASE RECURRENCE [None]
  - LYME DISEASE [None]
  - PHARMACEUTICAL PRODUCT COMPLAINT [None]
  - PRURITUS [None]
